FAERS Safety Report 4745802-7 (Version None)
Quarter: 2005Q3

REPORT INFORMATION
  Report Type: 
  Country: None (occurrence: None)
  Receive Date: 20050815
  Receipt Date: 20050815
  Transmission Date: 20060218
  Serious: Yes (Disabling)
  Sender: FDA-Public Use
  Company Number: None

PATIENT
  Sex: Female
  Weight: 60.782 kg

DRUGS (2)
  1. ARIMIDEX [Suspect]
     Indication: BREAST CANCER STAGE I
     Dosage: 1 MG DAILY ORAL
     Route: 048
     Dates: start: 20031111, end: 20050812
  2. ACTONEL [Concomitant]

REACTIONS (7)
  - ARTHRALGIA [None]
  - BLOOD CHOLESTEROL INCREASED [None]
  - DYSPNOEA [None]
  - FATIGUE [None]
  - MOOD SWINGS [None]
  - PALPITATIONS [None]
  - WEIGHT INCREASED [None]
